FAERS Safety Report 5444350-9 (Version None)
Quarter: 2007Q3

REPORT INFORMATION
  Report Type: 
  Country: None (occurrence: None)
  Receive Date: 20070904
  Receipt Date: 20070904
  Transmission Date: 20080115
  Serious: No
  Sender: FDA-Public Use
  Company Number: None

PATIENT
  Age: 58 Year
  Sex: Male
  Weight: 77.1115 kg

DRUGS (1)
  1. CIPRO XR [Suspect]
     Indication: PROSTATITIS
     Dosage: 1 DAILY PO
     Route: 048
     Dates: start: 20051129, end: 20051224

REACTIONS (5)
  - ABASIA [None]
  - ARTHRALGIA [None]
  - PAIN IN EXTREMITY [None]
  - PARAESTHESIA [None]
  - TENDON PAIN [None]
